FAERS Safety Report 14075860 (Version 1)
Quarter: 2017Q4

REPORT INFORMATION
  Report Type: Spontaneous
  Country: US (occurrence: US)
  Receive Date: 20171011
  Receipt Date: 20171011
  Transmission Date: 20180321
  Serious: No
  Sender: FDA-Public Use
  Company Number: US-BAYER-2017-195934

PATIENT
  Age: 39 Year
  Sex: Male
  Weight: 82 kg

DRUGS (1)
  1. MIRALAX [Suspect]
     Active Substance: POLYETHYLENE GLYCOL 3350
     Indication: GASTROINTESTINAL DISORDER
     Dosage: 17 GRAMS WITH 8 OUNCES OF WATER UNK
     Route: 048
     Dates: start: 20171007, end: 20171009

REACTIONS (3)
  - Product taste abnormal [None]
  - Product odour abnormal [None]
  - Expired product administered [Unknown]

NARRATIVE: CASE EVENT DATE: 20171007
